FAERS Safety Report 10274247 (Version 1)
Quarter: 2014Q3

REPORT INFORMATION
  Report Type: Spontaneous
  Country: US (occurrence: US)
  Receive Date: 20140702
  Receipt Date: 20140702
  Transmission Date: 20150326
  Serious: No
  Sender: FDA-Public Use
  Company Number: US-PFIZER INC-2014179215

PATIENT
  Age: 65 Year
  Sex: Female
  Weight: 77.1 kg

DRUGS (7)
  1. GABAPENTIN. [Suspect]
     Active Substance: GABAPENTIN
     Indication: NEUROPATHY PERIPHERAL
     Dosage: UNK
  2. ALPRAZOLAM. [Concomitant]
     Active Substance: ALPRAZOLAM
     Indication: ANXIETY
     Dosage: UNK
  3. AMLODIPINE [Concomitant]
     Active Substance: AMLODIPINE BESYLATE
     Indication: HYPERTENSION
     Dosage: 5 MG, 1X/DAY
     Route: 048
  4. BETAMETHASONE [Concomitant]
     Active Substance: BETAMETHASONE
     Indication: HYPERHIDROSIS
     Dosage: 0.5%, 2X/DAY ON HER HAND AND FEET
     Route: 061
  5. MECLIZINE [Concomitant]
     Active Substance: MECLIZINE\MECLIZINE HYDROCHLORIDE
     Indication: DIZZINESS
     Dosage: 25 MG, 4X/DAY (EVERY SIX HOURS)
  6. ALPRAZOLAM. [Concomitant]
     Active Substance: ALPRAZOLAM
     Indication: INSOMNIA
  7. MECLIZINE [Concomitant]
     Active Substance: MECLIZINE\MECLIZINE HYDROCHLORIDE
     Indication: VERTIGO

REACTIONS (5)
  - Dysstasia [Unknown]
  - Hypoaesthesia [Unknown]
  - Swelling [Unknown]
  - Cardiovascular disorder [Unknown]
  - Joint stiffness [Unknown]
